FAERS Safety Report 24813003 (Version 1)
Quarter: 2025Q1

REPORT INFORMATION
  Report Type: Spontaneous
  Country: CO (occurrence: CO)
  Receive Date: 20250107
  Receipt Date: 20250107
  Transmission Date: 20250409
  Serious: Yes (Disabling, Other)
  Sender: NOVO NORDISK
  Company Number: CO-NOVOPROD-1343957

PATIENT
  Sex: Male

DRUGS (1)
  1. RYBELSUS [Suspect]
     Active Substance: SEMAGLUTIDE
     Indication: Type 2 diabetes mellitus

REACTIONS (4)
  - Nerve injury [Unknown]
  - Movement disorder [Unknown]
  - Musculoskeletal disorder [Unknown]
  - Gun shot wound [Unknown]
